FAERS Safety Report 4788598-5 (Version None)
Quarter: 2005Q4

REPORT INFORMATION
  Report Type: 
  Country: None (occurrence: None)
  Receive Date: 20051005
  Receipt Date: 20050925
  Transmission Date: 20060501
  Serious: Yes (Death)
  Sender: FDA-Public Use
  Company Number: FR-JNJFOC-20050906244

PATIENT
  Age: 35 Year
  Sex: Male

DRUGS (1)
  1. RISPERDAL CONSTA [Suspect]
     Route: 030

REACTIONS (3)
  - ARTERY DISSECTION [None]
  - COORDINATION ABNORMAL [None]
  - MALAISE [None]
